FAERS Safety Report 8463401-0 (Version None)
Quarter: 2012Q2

REPORT INFORMATION
  Report Type: 
  Country: None (occurrence: None)
  Receive Date: 20120323
  Receipt Date: 20111031
  Transmission Date: 20120825
  Serious: Yes (Other)
  Sender: FDA-Public Use
  Company Number: 163-21880-11092752

PATIENT
  Age: 64 Year
  Sex: Female

DRUGS (3)
  1. LENALIDOMIDE [Suspect]
     Indication: MULTIPLE MYELOMA
     Dosage: 25 MG, DAYS 1-21, PO; 25 MG, PO; 20 MG, PO
     Route: 048
     Dates: start: 20110901
  2. LENALIDOMIDE [Suspect]
     Indication: MULTIPLE MYELOMA
     Dosage: 25 MG, DAYS 1-21, PO; 25 MG, PO; 20 MG, PO
     Route: 048
     Dates: start: 20110627
  3. LENALIDOMIDE [Suspect]
     Indication: MULTIPLE MYELOMA
     Dosage: 25 MG, DAYS 1-21, PO; 25 MG, PO; 20 MG, PO
     Route: 048
     Dates: start: 20101013, end: 20101230

REACTIONS (1)
  - NEUTROPHIL COUNT DECREASED [None]
